FAERS Safety Report 17196196 (Version 3)
Quarter: 2022Q3

REPORT INFORMATION
  Report Type: Spontaneous
  Country: US (occurrence: US)
  Receive Date: 20191224
  Receipt Date: 20220915
  Transmission Date: 20221026
  Serious: Yes (Disabling)
  Sender: FDA-Public Use
  Company Number: US-TEVA-2019-US-1158063

PATIENT
  Age: 94 Year
  Sex: Female

DRUGS (2)
  1. DOCETAXEL [Suspect]
     Active Substance: DOCETAXEL
     Indication: Breast cancer female
     Dosage: 75 MG 4 CYCLES EVERY THREE WEEKS
     Route: 065
     Dates: start: 20160314, end: 20160516
  2. CYTOXAN [Concomitant]
     Active Substance: CYCLOPHOSPHAMIDE
     Indication: Breast cancer female
     Dosage: 4 CYCLES
     Route: 065
     Dates: start: 20160314, end: 20160516

REACTIONS (4)
  - Madarosis [Not Recovered/Not Resolved]
  - Alopecia totalis [Not Recovered/Not Resolved]
  - Hair texture abnormal [Not Recovered/Not Resolved]
  - Hair colour changes [Not Recovered/Not Resolved]

NARRATIVE: CASE EVENT DATE: 20160324
